FAERS Safety Report 7356638-5 (Version None)
Quarter: 2011Q1

REPORT INFORMATION
  Report Type: 
  Country: None (occurrence: None)
  Receive Date: 20110316
  Receipt Date: 20110304
  Transmission Date: 20110831
  Serious: Yes (Hospitalization)
  Sender: FDA-Public Use
  Company Number: PHHY2011GB17841

PATIENT
  Age: 42 Year
  Sex: Male

DRUGS (3)
  1. OXALIPLATIN [Suspect]
     Indication: COLORECTAL CANCER METASTATIC
     Dosage: 85 MG/M2, EVERY 14 DAYS
     Dates: start: 20101109
  2. FLUOROURACIL [Suspect]
     Dosage: 2400 MG/M2, EVERY 14 DAYS
     Dates: start: 20101109
  3. AVASTIN [Suspect]
     Indication: COLORECTAL CANCER METASTATIC
     Dosage: 5 MG/KG, EVERY 14 DAYS
     Dates: start: 20101109, end: 20101121

REACTIONS (1)
  - PULMONARY EMBOLISM [None]
